FAERS Safety Report 7247132-0 (Version None)
Quarter: 2011Q1

REPORT INFORMATION
  Report Type: 
  Country: None (occurrence: None)
  Receive Date: 20110127
  Receipt Date: 20100824
  Transmission Date: 20110831
  Serious: No
  Sender: FDA-Public Use
  Company Number: US-BAUSCH-2010BL004691

PATIENT
  Age: 71 Year
  Sex: Female

DRUGS (4)
  1. NAPHCON-A [Concomitant]
  2. ALAWAY [Suspect]
     Indication: EYE PRURITUS
     Route: 047
     Dates: start: 20100822, end: 20100823
  3. GENTEAL [Concomitant]
  4. SYSTANE [Concomitant]

REACTIONS (1)
  - DRY SKIN [None]
